FAERS Safety Report 12513609 (Version 2)
Quarter: 2016Q3

REPORT INFORMATION
  Report Type: Spontaneous
  Country: US (occurrence: US)
  Receive Date: 20160630
  Receipt Date: 20160912
  Transmission Date: 20161109
  Serious: Yes (Hospitalization)
  Sender: FDA-Public Use
  Company Number: US-JNJFOC-20160512942

PATIENT
  Age: 51 Year
  Sex: Female

DRUGS (9)
  1. XARELTO [Suspect]
     Active Substance: RIVAROXABAN
     Indication: DEEP VEIN THROMBOSIS
     Route: 048
     Dates: start: 2015, end: 20150223
  2. XARELTO [Suspect]
     Active Substance: RIVAROXABAN
     Indication: DEEP VEIN THROMBOSIS
     Dosage: 15 MG TWICE A DAY AND 20 MG
     Route: 048
     Dates: start: 20150121, end: 201502
  3. XARELTO [Suspect]
     Active Substance: RIVAROXABAN
     Indication: PULMONARY EMBOLISM
     Dosage: 15 MG TWICE A DAY AND 20 MG
     Route: 048
     Dates: start: 201502, end: 20150206
  4. XARELTO [Suspect]
     Active Substance: RIVAROXABAN
     Indication: PULMONARY EMBOLISM
     Dosage: 15 MG TWICE A DAY AND 20 MG
     Route: 048
     Dates: start: 20150121, end: 201502
  5. XARELTO [Suspect]
     Active Substance: RIVAROXABAN
     Indication: DEEP VEIN THROMBOSIS
     Dosage: 15 MG TWICE A DAY AND 20 MG
     Route: 048
     Dates: start: 201502, end: 20150206
  6. XARELTO [Suspect]
     Active Substance: RIVAROXABAN
     Indication: OVARIAN VEIN THROMBOSIS
     Route: 048
     Dates: start: 2015, end: 20150223
  7. XARELTO [Suspect]
     Active Substance: RIVAROXABAN
     Indication: OVARIAN VEIN THROMBOSIS
     Dosage: 15 MG TWICE A DAY AND 20 MG
     Route: 048
     Dates: start: 20150121, end: 201502
  8. XARELTO [Suspect]
     Active Substance: RIVAROXABAN
     Indication: PULMONARY EMBOLISM
     Route: 048
     Dates: start: 2015, end: 20150223
  9. XARELTO [Suspect]
     Active Substance: RIVAROXABAN
     Indication: OVARIAN VEIN THROMBOSIS
     Dosage: 15 MG TWICE A DAY AND 20 MG
     Route: 048
     Dates: start: 201502, end: 20150206

REACTIONS (1)
  - Ureteric haemorrhage [Recovered/Resolved]

NARRATIVE: CASE EVENT DATE: 20150125
